FAERS Safety Report 9409595 (Version 1)
Quarter: 2013Q3

REPORT INFORMATION
  Report Type: Spontaneous
  Country: US (occurrence: None)
  Receive Date: 20130716
  Receipt Date: 20130716
  Transmission Date: 20140515
  Serious: Yes (Other)
  Sender: FDA-Public Use
  Company Number: 2013SA070155

PATIENT
  Sex: Male

DRUGS (1)
  1. CAPZASIN HP CREME [Suspect]
     Indication: MUSCULOSKELETAL PAIN
     Dosage: UNKNOWN

REACTIONS (2)
  - Application site burn [None]
  - Application site exfoliation [None]
